FAERS Safety Report 8900892 (Version 2)
Quarter: 2012Q4

REPORT INFORMATION
  Report Type: 
  Country: None (occurrence: None)
  Receive Date: 20121109
  Receipt Date: 20121126
  Transmission Date: 20130627
  Serious: Yes (Other)
  Sender: FDA-Public Use
  Company Number: PS-INCYTE CORPORATION-2012IN002254

PATIENT
  Sex: Female

DRUGS (1)
  1. JAKAVI [Suspect]
     Indication: MYELOFIBROSIS
     Dosage: 2 DF, UNK
     Route: 048
     Dates: start: 20121031

REACTIONS (1)
  - Haematemesis [Recovered/Resolved]
